FAERS Safety Report 8851106 (Version 2)
Quarter: 2012Q4

REPORT INFORMATION
  Report Type: Report from Study
  Country: US (occurrence: US)
  Receive Date: 20121019
  Receipt Date: 20121030
  Transmission Date: 20130627
  Serious: No
  Sender: FDA-Public Use
  Company Number: US-VERTEX PHARMACEUTICAL INC.-2012-022730

PATIENT
  Age: 47 Year
  Sex: Female
  Weight: 49 kg

DRUGS (9)
  1. VX-950 [Suspect]
     Indication: HEPATITIS C
     Dosage: 750 mg, tid
     Route: 048
  2. GABAPENTIN [Concomitant]
     Dosage: 300 mg, UNK
  3. PRILOSEC                           /00661201/ [Concomitant]
     Dosage: 20 mg, UNK
  4. PROPRANOLOL [Concomitant]
     Dosage: 60 mg, ER
  5. MULTIVITAMIN                       /00097801/ [Concomitant]
  6. FLECTOR                            /00372302/ [Concomitant]
     Dosage: 1.3 %, UNK
  7. CALCIUM + VITAMIN D [Concomitant]
  8. VOLTAREN                           /00372301/ [Concomitant]
     Dosage: 0.1 %, UNK
  9. IRON [Concomitant]
     Dosage: 28 mg, UNK

REACTIONS (3)
  - Arthralgia [Unknown]
  - Back pain [Unknown]
  - Rash [Unknown]
